FAERS Safety Report 9168032 (Version 1)
Quarter: 2013Q1

REPORT INFORMATION
  Report Type: Spontaneous
  Country: US (occurrence: None)
  Receive Date: 20130318
  Receipt Date: 20130318
  Transmission Date: 20140127
  Serious: Yes (Life-Threatening, Hospitalization, Disabling, Other)
  Sender: FDA-Public Use
  Company Number: None

PATIENT
  Age: 41 Year
  Sex: Female
  Weight: 65.77 kg

DRUGS (1)
  1. STEROID INJECTION NOS [Suspect]
     Dosage: EPIDURAL
     Route: 008

REACTIONS (2)
  - Spinal cord infection [None]
  - Fungal infection [None]
